FAERS Safety Report 9672208 (Version 1)
Quarter: 2013Q4

REPORT INFORMATION
  Report Type: Spontaneous
  Country: US (occurrence: US)
  Receive Date: 20131106
  Receipt Date: 20131106
  Transmission Date: 20140711
  Serious: No
  Sender: FDA-Public Use
  Company Number: US-ENDO PHARMACEUTICALS INC.-HCDA20130048

PATIENT
  Sex: Female

DRUGS (2)
  1. HYDROCODONE/ACETAMINOPHEN 10MG/500MG [Suspect]
     Indication: BACK PAIN
     Dosage: 10/500 MG
     Route: 048
     Dates: start: 201203, end: 201212
  2. HYDROCODONE/ACETAMINOPHEN 10MG/500MG [Suspect]
     Indication: MUSCULOSKELETAL PAIN

REACTIONS (3)
  - Abdominal pain lower [Not Recovered/Not Resolved]
  - Gastrointestinal disorder [Unknown]
  - Nausea [Unknown]
